FAERS Safety Report 6019237-3 (Version None)
Quarter: 2008Q4

REPORT INFORMATION
  Report Type: 
  Country: None (occurrence: None)
  Receive Date: 20081224
  Receipt Date: 20081212
  Transmission Date: 20090506
  Serious: Yes (Death)
  Sender: FDA-Public Use
  Company Number: JP-PFIZER INC-2008154191

PATIENT

DRUGS (7)
  1. SILDENAFIL CITRATE [Suspect]
     Indication: PULMONARY HYPERTENSION
     Dosage: UNK
     Route: 048
     Dates: start: 20080812, end: 20081204
  2. SILDENAFIL CITRATE [Suspect]
     Dosage: UNK
     Route: 048
  3. DORNER [Concomitant]
     Route: 048
  4. TRACLEER [Concomitant]
     Route: 048
  5. WARFARIN POTASSIUM [Concomitant]
     Route: 048
  6. LASIX [Concomitant]
  7. DIART [Concomitant]
     Route: 048

REACTIONS (1)
  - RESPIRATORY FAILURE [None]
